FAERS Safety Report 5640555-2 (Version None)
Quarter: 2008Q1

REPORT INFORMATION
  Report Type: 
  Country: None (occurrence: None)
  Receive Date: 20080227
  Receipt Date: 20080225
  Transmission Date: 20080703
  Serious: Yes (Hospitalization)
  Sender: FDA-Public Use
  Company Number: PHRM2008FR00896

PATIENT
  Age: 11 Year
  Sex: Male
  Weight: 57 kg

DRUGS (1)
  1. VOLTAREN [Suspect]
     Indication: JOINT SPRAIN
     Dosage: 25 MG DAILY
     Route: 048

REACTIONS (2)
  - EYE MOVEMENT DISORDER [None]
  - VISUAL FIELD DEFECT [None]
